FAERS Safety Report 10188311 (Version 5)
Quarter: 2014Q2

REPORT INFORMATION
  Report Type: Spontaneous
  Country: ES (occurrence: ES)
  Receive Date: 20140522
  Receipt Date: 20140618
  Transmission Date: 20141212
  Serious: Yes (Death, Hospitalization, Other)
  Sender: FDA-Public Use
  Company Number: ES-VERTEX PHARMACEUTICALS INC-2014-001995

PATIENT
  Age: 46 Year
  Sex: Male
  Weight: 61 kg

DRUGS (7)
  1. INCIVO [Suspect]
     Indication: HEPATITIS C
     Dosage: 750 MG, TID
     Route: 048
     Dates: start: 20131129, end: 20140216
  2. RIBAVIRIN [Suspect]
     Indication: HEPATITIS C
     Dosage: 1200 MG, QD
     Route: 065
     Dates: start: 20131129
  3. RIBAVIRIN [Suspect]
     Dosage: 600 MG, QD
     Route: 065
     Dates: end: 20140216
  4. PEGASYS [Suspect]
     Indication: HEPATITIS C
     Dosage: 180 ?G, QW
     Route: 065
     Dates: start: 20131129, end: 20140216
  5. RALTEGRAVIR [Suspect]
     Indication: HIV INFECTION
     Dosage: UNK
     Route: 065
  6. TRUVADA [Suspect]
     Indication: HIV INFECTION
     Dosage: UNK
     Route: 065
  7. CLOTRIMAZOL [Suspect]
     Indication: PRODUCT USED FOR UNKNOWN INDICATION
     Dosage: UNK
     Route: 065

REACTIONS (15)
  - Gastrointestinal ischaemia [Fatal]
  - Blood triglycerides increased [Unknown]
  - Gastroenteritis [Unknown]
  - Influenza [Unknown]
  - Thrombosis [Unknown]
  - Syncope [Recovered/Resolved]
  - Diarrhoea [Recovering/Resolving]
  - Anaemia [Unknown]
  - Platelet count decreased [Unknown]
  - Drug reaction with eosinophilia and systemic symptoms [Unknown]
  - Erythema multiforme [Unknown]
  - Off label use [Unknown]
  - Emotional disorder [Unknown]
  - Asthenia [Unknown]
  - Rash [Recovered/Resolved]
